FAERS Safety Report 19576642 (Version 1)
Quarter: 2021Q3

REPORT INFORMATION
  Report Type: Spontaneous
  Country: US (occurrence: US)
  Receive Date: 20210719
  Receipt Date: 20210719
  Transmission Date: 20211014
  Serious: No
  Sender: FDA-Public Use
  Company Number: None

PATIENT
  Age: 71 Year
  Sex: Male
  Weight: 158 kg

DRUGS (1)
  1. OXYCODONE (OXYCODONE HCL 5MG TAB,UD) [Suspect]
     Active Substance: OXYCODONE HYDROCHLORIDE
     Indication: PAIN
     Route: 048
     Dates: start: 20210710, end: 20210710

REACTIONS (4)
  - Fall [None]
  - Somnolence [None]
  - Pain [None]
  - Respiratory depression [None]

NARRATIVE: CASE EVENT DATE: 20210710
